FAERS Safety Report 7243362-2 (Version None)
Quarter: 2011Q1

REPORT INFORMATION
  Report Type: 
  Country: None (occurrence: None)
  Receive Date: 20110125
  Receipt Date: 20110118
  Transmission Date: 20110831
  Serious: Yes (Death, Life-Threatening, Other)
  Sender: FDA-Public Use
  Company Number: GR-PFIZER INC-2011005486

PATIENT
  Age: 93 Year
  Sex: Female
  Weight: 58 kg

DRUGS (3)
  1. ASPIRIN [Concomitant]
     Indication: PAIN
     Dosage: UNKNOWN
     Route: 048
     Dates: start: 20091210, end: 20091214
  2. CIPROXIN [Suspect]
     Indication: ABDOMINAL INFECTION
     Dosage: 500 MG, 2X/DAY
     Route: 042
     Dates: start: 20091215, end: 20091221
  3. FLAGYL [Suspect]
     Indication: ABDOMINAL INFECTION
     Dosage: 500 MG, 3X/DAY
     Route: 042
     Dates: start: 20091215, end: 20091221

REACTIONS (2)
  - MULTI-ORGAN FAILURE [None]
  - MYOCARDIAL INFARCTION [None]
